FAERS Safety Report 22931818 (Version 2)
Quarter: 2023Q4

REPORT INFORMATION
  Report Type: Spontaneous
  Country: IT (occurrence: IT)
  Receive Date: 20230911
  Receipt Date: 20231016
  Transmission Date: 20240110
  Serious: Yes (Death, Other)
  Sender: FDA-Public Use
  Company Number: IT-CELLTRION INC.-2023IT017605

PATIENT

DRUGS (4)
  1. BEVACIZUMAB [Suspect]
     Active Substance: BEVACIZUMAB
     Indication: Glioma
     Dosage: FOR 15 MONTHS
     Route: 065
  2. IRINOTECAN [Concomitant]
     Active Substance: IRINOTECAN
     Indication: Brain stem glioma
     Dosage: FOR 15 MONTHS
     Route: 065
  3. TEMOZOLOMIDE [Concomitant]
     Active Substance: TEMOZOLOMIDE
     Indication: Brain stem glioma
     Dosage: UNK
  4. ETOPOSIDE [Concomitant]
     Active Substance: ETOPOSIDE
     Indication: Brain stem glioma
     Dosage: UNK

REACTIONS (11)
  - Death [Fatal]
  - Brain stem glioma [Unknown]
  - Hydrocephalus [Unknown]
  - Disease progression [Unknown]
  - Malignant pleural effusion [Unknown]
  - Lymphadenopathy mediastinal [Unknown]
  - Abdominal lymphadenopathy [Unknown]
  - Bone lesion [Unknown]
  - Back pain [Unknown]
  - Therapy partial responder [Unknown]
  - Off label use [Unknown]

NARRATIVE: CASE EVENT DATE: 20211001
